FAERS Safety Report 6304948-2 (Version None)
Quarter: 2009Q3

REPORT INFORMATION
  Report Type: 
  Country: None (occurrence: None)
  Receive Date: 20090811
  Receipt Date: 20090806
  Transmission Date: 20100115
  Serious: Yes (Death)
  Sender: FDA-Public Use
  Company Number: DE-BRISTOL-MYERS SQUIBB COMPANY-14690770

PATIENT
  Age: 69 Year
  Sex: Male
  Weight: 55 kg

DRUGS (7)
  1. CISPLATIN [Suspect]
     Indication: HEAD AND NECK CANCER
     Route: 065
     Dates: start: 20090611, end: 20090611
  2. FOLIC ACID [Concomitant]
     Indication: SUPPLEMENTATION THERAPY
     Dates: start: 20090603
  3. VITAMIN B-12 [Concomitant]
     Indication: SUPPLEMENTATION THERAPY
     Dates: start: 20090603
  4. DEXAMETHASONE [Concomitant]
     Indication: SUPPLEMENTATION THERAPY
  5. AUGMENTIN [Concomitant]
  6. AVELOX [Concomitant]
  7. AMITRIPTYLINE HCL [Concomitant]

REACTIONS (6)
  - COUGH [None]
  - ESCHERICHIA INFECTION [None]
  - MALIGNANT NEOPLASM PROGRESSION [None]
  - PROTEUS INFECTION [None]
  - SALIVARY HYPERSECRETION [None]
  - STAPHYLOCOCCAL INFECTION [None]
